FAERS Safety Report 10850406 (Version 2)
Quarter: 2015Q1

REPORT INFORMATION
  Report Type: Report from Study
  Country: US (occurrence: US)
  Receive Date: 20150222
  Receipt Date: 20150301
  Transmission Date: 20150721
  Serious: Yes (Other)
  Sender: FDA-Public Use
  Company Number: PHEH2015US002020

PATIENT
  Sex: Female
  Weight: 160 kg

DRUGS (1)
  1. GILENYA [Suspect]
     Active Substance: FINGOLIMOD HYDROCHLORIDE
     Indication: MULTIPLE SCLEROSIS
     Dosage: 0.5 MG, QD
     Route: 048
     Dates: start: 20111222

REACTIONS (5)
  - Road traffic accident [Unknown]
  - Macular degeneration [Unknown]
  - Eye swelling [Unknown]
  - Visual acuity reduced [Unknown]
  - Lower limb fracture [Unknown]
